FAERS Safety Report 10120759 (Version 1)
Quarter: 2014Q2

REPORT INFORMATION
  Report Type: Spontaneous
  Country: US (occurrence: US)
  Receive Date: 20140425
  Receipt Date: 20140425
  Transmission Date: 20141212
  Serious: Yes (Death)
  Sender: FDA-Public Use
  Company Number: US-BRISTOL-MYERS SQUIBB COMPANY-20656377

PATIENT
  Age: 56 Year
  Sex: Female

DRUGS (1)
  1. YERVOY [Suspect]
     Dosage: ONE DOSE OF YERVOY.
     Dates: start: 20140305

REACTIONS (1)
  - Death [Fatal]
